FAERS Safety Report 4704924-7 (Version None)
Quarter: 2005Q2

REPORT INFORMATION
  Report Type: 
  Country: None (occurrence: None)
  Receive Date: 20050630
  Receipt Date: 20050630
  Transmission Date: 20051028
  Serious: Yes (Other)
  Sender: FDA-Public Use
  Company Number: None

PATIENT
  Age: 25 Year
  Sex: Male

DRUGS (8)
  1. LUNESTA [Suspect]
  2. DEPAKOTE [Concomitant]
  3. OXYCODONE HCL [Concomitant]
  4. ATIVAN [Concomitant]
  5. LEXAPRO [Concomitant]
  6. ALLEGRA [Concomitant]
  7. PHENERGAN [Concomitant]
  8. MECLIZINE [Concomitant]

REACTIONS (2)
  - DIZZINESS [None]
  - NAUSEA [None]
